FAERS Safety Report 19150635 (Version 1)
Quarter: 2021Q2

REPORT INFORMATION
  Report Type: Spontaneous
  Country: CA (occurrence: CA)
  Receive Date: 20210418
  Receipt Date: 20210418
  Transmission Date: 20210717
  Serious: Yes (Other)
  Sender: FDA-Public Use
  Company Number: CA-BEH-2021130507

PATIENT
  Age: 28 Year
  Sex: Male

DRUGS (2)
  1. PRIVIGEN [Suspect]
     Active Substance: HUMAN IMMUNOGLOBULIN G
     Dosage: 5 GRAM, TOT
     Route: 042
     Dates: start: 20210228, end: 20210228
  2. PRIVIGEN [Suspect]
     Active Substance: HUMAN IMMUNOGLOBULIN G
     Dosage: 10 GRAM, TOT
     Route: 042
     Dates: start: 20210228, end: 20210228

REACTIONS (11)
  - Dyspnoea [Unknown]
  - Arrhythmia [Unknown]
  - Flank pain [Unknown]
  - Infusion related hypersensitivity reaction [Unknown]
  - Nausea [Unknown]
  - Rash [Unknown]
  - Vomiting [Unknown]
  - Erythema [Unknown]
  - Headache [Unknown]
  - Tachycardia [Unknown]
  - Chills [Unknown]

NARRATIVE: CASE EVENT DATE: 20210228
